FAERS Safety Report 4361912-0 (Version None)
Quarter: 2004Q2

REPORT INFORMATION
  Report Type: 
  Country: None (occurrence: None)
  Receive Date: 20040521
  Receipt Date: 20040106
  Transmission Date: 20050107
  Serious: No
  Sender: FDA-Public Use
  Company Number: US-GLAXOSMITHKLINE-A0491733A

PATIENT
  Age: 52 Year
  Sex: Female
  Weight: 52.3 kg

DRUGS (1)
  1. WELLBUTRIN XL [Suspect]
     Indication: ILL-DEFINED DISORDER
     Dosage: 300MG PER DAY
     Route: 048
     Dates: start: 20040223, end: 20040226

REACTIONS (4)
  - DYSPNOEA [None]
  - PARAESTHESIA [None]
  - RASH [None]
  - STOMACH DISCOMFORT [None]
